FAERS Safety Report 10731993 (Version 1)
Quarter: 2015Q1

REPORT INFORMATION
  Report Type: Spontaneous
  Country: US (occurrence: US)
  Receive Date: 20150123
  Receipt Date: 20150123
  Transmission Date: 20150721
  Serious: Yes (Other)
  Sender: FDA-Public Use
  Company Number: US-ROCHE-1520399

PATIENT
  Sex: Male

DRUGS (1)
  1. AVASTIN [Suspect]
     Active Substance: BEVACIZUMAB
     Indication: AGE-RELATED MACULAR DEGENERATION
     Route: 050

REACTIONS (10)
  - Macular oedema [Unknown]
  - Diabetic retinopathy [Unknown]
  - Anxiety [Unknown]
  - Vitreous detachment [Unknown]
  - Eye injury [Unknown]
  - Endophthalmitis [Unknown]
  - Abscess [Unknown]
  - Blindness [Unknown]
  - Vitreous haemorrhage [Unknown]
  - Suspected transmission of an infectious agent via product [Unknown]
